FAERS Safety Report 13364168 (Version 1)
Quarter: 2017Q1

REPORT INFORMATION
  Report Type: Spontaneous
  Country: US (occurrence: US)
  Receive Date: 20170323
  Receipt Date: 20170323
  Transmission Date: 20170429
  Serious: No
  Sender: FDA-Public Use
  Company Number: US-ROCHE-1331144

PATIENT
  Age: 48 Year
  Sex: Female

DRUGS (9)
  1. CETIRIZINE [Concomitant]
     Active Substance: CETIRIZINE HYDROCHLORIDE
  2. XOLAIR [Suspect]
     Active Substance: OMALIZUMAB
     Indication: ASTHMA
     Route: 058
     Dates: start: 20131002, end: 20131222
  3. PROAIR HFA [Concomitant]
     Active Substance: ALBUTEROL SULFATE
  4. ZITHROMAX [Concomitant]
     Active Substance: AZITHROMYCIN DIHYDRATE
  5. TESSALON [Concomitant]
     Active Substance: BENZONATATE
  6. MUCINEX [Concomitant]
     Active Substance: GUAIFENESIN
  7. OMNARIS [Concomitant]
     Active Substance: CICLESONIDE
  8. OMEPRAZOLE. [Concomitant]
     Active Substance: OMEPRAZOLE
  9. DIFLUCAN [Concomitant]
     Active Substance: FLUCONAZOLE

REACTIONS (1)
  - Foaming at mouth [Not Recovered/Not Resolved]

NARRATIVE: CASE EVENT DATE: 20131222
